FAERS Safety Report 6646937-4 (Version None)
Quarter: 2010Q1

REPORT INFORMATION
  Report Type: 
  Country: None (occurrence: None)
  Receive Date: 20100323
  Receipt Date: 20100312
  Transmission Date: 20100710
  Serious: Yes (Hospitalization, Disabling)
  Sender: FDA-Public Use
  Company Number: US-JNJFOC-20090200298

PATIENT
  Sex: Male

DRUGS (6)
  1. MOTRIN [Suspect]
     Indication: TOOTHACHE
  2. ACYCLOVIR [Concomitant]
  3. TRIAMTERENE AND HYDROCHLOROTHIAZIDE [Concomitant]
     Indication: HYPERTENSION
     Dosage: 37.5/25
  4. UNSPECIFIED MOUTHWASH [Concomitant]
     Dosage: SWISH AND SPIT 1-2 TEASPOONS EVERY 4 HOURS
  5. OXYCODONE HCL AND ACETAMINOPHEN [Concomitant]
     Indication: PAIN
     Dosage: 5/325 1-2 EVERY 4 HOURS AS NEEDED
  6. LIDOCAINE HCL VISCOUS [Concomitant]
     Dosage: 2 TEASPOONS EVERY 2-3 HOURS

REACTIONS (4)
  - DRUG INEFFECTIVE [None]
  - ERYTHEMA MULTIFORME [None]
  - RENAL FAILURE ACUTE [None]
  - STEVENS-JOHNSON SYNDROME [None]
